FAERS Safety Report 23925054 (Version 1)
Quarter: 2024Q2

REPORT INFORMATION
  Report Type: Spontaneous
  Country: US (occurrence: US)
  Receive Date: 20240531
  Receipt Date: 20240531
  Transmission Date: 20240716
  Serious: No
  Sender: FDA-Public Use
  Company Number: US-GLANDPHARMA-US-2024GLNSPO00316

PATIENT
  Sex: Male

DRUGS (1)
  1. VORICONAZOLE [Suspect]
     Active Substance: VORICONAZOLE
     Indication: Pneumonia
     Route: 065

REACTIONS (6)
  - Skin injury [Unknown]
  - Skin fissures [Unknown]
  - Chapped lips [Unknown]
  - Pain of skin [Unknown]
  - Lip pain [Unknown]
  - Photophobia [Unknown]
